FAERS Safety Report 10094891 (Version 2)
Quarter: 2014Q2

REPORT INFORMATION
  Report Type: Spontaneous
  Country: CH (occurrence: CH)
  Receive Date: 20140422
  Receipt Date: 20140516
  Transmission Date: 20141212
  Serious: Yes (Life-Threatening, Hospitalization)
  Sender: FDA-Public Use
  Company Number: CH-TEVA-476171ISR

PATIENT
  Age: 69 Year
  Sex: Female
  Weight: 55 kg

DRUGS (17)
  1. DOBUTAMINE [Suspect]
     Dosage: EXACT DURATION OF ADMINISTRATION NOT KNOWN
     Route: 041
     Dates: start: 20140407, end: 20140407
  2. ENALAPRIL [Suspect]
     Dosage: 2.5 MILLIGRAM DAILY; LONG TERM
     Route: 048
     Dates: end: 20140407
  3. DOCETAXEL [Suspect]
     Indication: BREAST NEOPLASM
     Dates: start: 20140328
  4. ERTAPENEM [Suspect]
     Dosage: 1 MILLIGRAM DAILY;
     Route: 041
     Dates: start: 20140406
  5. LASIX [Suspect]
     Dosage: 3 MILLIGRAM DAILY;
     Route: 041
     Dates: start: 20140406
  6. ENDOXAN [Suspect]
     Indication: BREAST NEOPLASM
     Dates: start: 20140328
  7. FLUCONAZOLE [Concomitant]
     Dosage: 400 MILLIGRAM DAILY; CONTINUING
     Route: 065
     Dates: start: 20140403
  8. RANITIDINE [Concomitant]
     Dosage: 150 MILLIGRAM DAILY; CONTINUING
     Route: 041
     Dates: start: 20140404
  9. AMIODARONE [Concomitant]
     Dosage: 1200 MILLIGRAM DAILY;
     Route: 041
     Dates: start: 20140405
  10. INDERAL [Concomitant]
     Dosage: 30 MILLIGRAM DAILY;
     Route: 048
     Dates: end: 20140406
  11. LAMOTRIGINE [Concomitant]
     Dosage: 300 MILLIGRAM DAILY; LONG TERM, CONTINUING
     Route: 048
     Dates: end: 20140406
  12. TAZOBAC [Concomitant]
     Route: 041
     Dates: start: 20140403, end: 20140404
  13. VANCOCIN [Concomitant]
     Route: 041
     Dates: start: 20140403, end: 20140404
  14. AZTREONAM [Concomitant]
     Route: 065
     Dates: start: 20140404, end: 20140404
  15. METRONIDAZOLE [Concomitant]
     Route: 065
     Dates: start: 20140404, end: 20140404
  16. MEROPENEM [Concomitant]
     Route: 065
     Dates: start: 20140404, end: 20140405
  17. AUGMENTIN [Concomitant]
     Route: 065
     Dates: start: 20140405, end: 20140406

REACTIONS (5)
  - Hypotension [Recovered/Resolved]
  - Coma [Recovering/Resolving]
  - Clonus [Recovered/Resolved]
  - Agranulocytosis [Recovered/Resolved]
  - Septic shock [Recovered/Resolved]
